FAERS Safety Report 12520888 (Version 1)
Quarter: 2016Q2

REPORT INFORMATION
  Report Type: Spontaneous
  Country: US (occurrence: None)
  Receive Date: 20160630
  Receipt Date: 20160630
  Transmission Date: 20160815
  Serious: Yes (Disabling, Other)
  Sender: FDA-Public Use
  Company Number: None

PATIENT
  Age: 66 Year
  Sex: Female
  Weight: 76.66 kg

DRUGS (15)
  1. ROSUVASTATIN CALCIUM 40 MG (SUB. FOR CRESTOR 40 MG ACTAVIS PHARM [Suspect]
     Active Substance: ROSUVASTATIN CALCIUM
     Indication: BLOOD CHOLESTEROL
     Dates: start: 20160601
  2. ROSUVASTATIN CALCIUM 40 MG (SUB. FOR CRESTOR 40 MG ACTAVIS PHARM [Suspect]
     Active Substance: ROSUVASTATIN CALCIUM
     Indication: BLOOD TRIGLYCERIDES
     Dates: start: 20160601
  3. METOPROLOL. [Concomitant]
     Active Substance: METOPROLOL
  4. EFFIENT [Concomitant]
     Active Substance: PRASUGREL HYDROCHLORIDE
  5. ASP [Concomitant]
     Active Substance: ASPIRIN
  6. MAGNESIUM [Concomitant]
     Active Substance: MAGNESIUM
  7. VIT. D [Concomitant]
  8. PRALUENT [Concomitant]
     Active Substance: ALIROCUMAB
  9. ZETIA [Concomitant]
     Active Substance: EZETIMIBE
  10. PREMARIN [Concomitant]
     Active Substance: ESTROGENS, CONJUGATED
  11. GLUCOSAMINE [Concomitant]
     Active Substance: GLUCOSAMINE
  12. COQ 10 [Concomitant]
     Active Substance: UBIDECARENONE
  13. CELEBREX [Concomitant]
     Active Substance: CELECOXIB
  14. NEXIUM [Concomitant]
     Active Substance: ESOMEPRAZOLE MAGNESIUM
  15. CENTRUM SILVER FOR WOMEN [Concomitant]
     Active Substance: MINERALS\VITAMINS

REACTIONS (8)
  - Flatulence [None]
  - Muscle spasms [None]
  - Abdominal distension [None]
  - Bursitis [None]
  - Gait disturbance [None]
  - Activities of daily living impaired [None]
  - Carpal tunnel syndrome [None]
  - Arthralgia [None]

NARRATIVE: CASE EVENT DATE: 20160601
